FAERS Safety Report 19645599 (Version 2)
Quarter: 2021Q3

REPORT INFORMATION
  Report Type: Spontaneous
  Country: US (occurrence: US)
  Receive Date: 20210802
  Receipt Date: 20210805
  Transmission Date: 20211014
  Serious: No
  Sender: FDA-Public Use
  Company Number: US-AMGEN INC.-USASP2021115373

PATIENT
  Age: 63 Year
  Sex: Female

DRUGS (2)
  1. AIMOVIG [Suspect]
     Active Substance: ERENUMAB-AOOE
     Indication: MIGRAINE
     Dosage: 140 MILLIGRAM, QMO
     Route: 058
  2. AIMOVIG [Suspect]
     Active Substance: ERENUMAB-AOOE
     Dosage: 140 MILLIGRAM, QMO
     Route: 058

REACTIONS (9)
  - COVID-19 [Unknown]
  - Accidental exposure to product [Unknown]
  - Nausea [Unknown]
  - Product storage error [Unknown]
  - Wrong technique in product usage process [Unknown]
  - Visual impairment [Unknown]
  - Headache [Unknown]
  - Weight increased [Unknown]
  - Illness [Unknown]

NARRATIVE: CASE EVENT DATE: 2021
